FAERS Safety Report 4522070-2 (Version None)
Quarter: 2004Q4

REPORT INFORMATION
  Report Type: 
  Country: None (occurrence: None)
  Receive Date: 20041209
  Receipt Date: 20041116
  Transmission Date: 20050328
  Serious: Yes (Life-Threatening, Hospitalization, Disabling)
  Sender: FDA-Public Use
  Company Number: US-MERCK-0411USA02784

PATIENT
  Age: 81 Year
  Sex: Female
  Weight: 63 kg

DRUGS (8)
  1. VIOXX [Suspect]
     Indication: ARTHRITIS
     Route: 048
     Dates: start: 20011015, end: 20040929
  2. COUMADIN [Concomitant]
     Route: 065
  3. DIOVAN [Concomitant]
     Route: 065
  4. FOSAMAX [Concomitant]
     Route: 048
  5. COREG [Concomitant]
     Route: 065
  6. TOPROL-XL [Concomitant]
     Route: 065
  7. ZOCOR [Concomitant]
     Route: 048
  8. PRAVACHOL [Concomitant]
     Route: 065

REACTIONS (1)
  - CARDIAC DISORDER [None]
